FAERS Safety Report 8110937-8 (Version None)
Quarter: 2012Q1

REPORT INFORMATION
  Report Type: 
  Country: None (occurrence: None)
  Receive Date: 20120203
  Receipt Date: 20111004
  Transmission Date: 20120608
  Serious: Yes (Hospitalization)
  Sender: FDA-Public Use
  Company Number: US-GLAXOSMITHKLINE-A0884283A

PATIENT
  Age: 38 Year
  Sex: Female
  Weight: 57.3 kg

DRUGS (8)
  1. CARDIZEM [Concomitant]
  2. FIORICET [Concomitant]
  3. LAMICTAL [Suspect]
     Indication: EPILEPSY
     Dosage: 25MG TWICE PER DAY
     Route: 048
     Dates: start: 20090126, end: 20090216
  4. SKELAXIN [Concomitant]
  5. DEMEROL [Concomitant]
  6. ALBUTEROL [Concomitant]
  7. TOPAMAX [Concomitant]
  8. NEXIUM [Concomitant]

REACTIONS (3)
  - ESCHERICHIA URINARY TRACT INFECTION [None]
  - STEVENS-JOHNSON SYNDROME [None]
  - DRUG HYPERSENSITIVITY [None]
